FAERS Safety Report 16019291 (Version 15)
Quarter: 2019Q4

REPORT INFORMATION
  Report Type: Report from Study
  Country: US (occurrence: US)
  Receive Date: 20190228
  Receipt Date: 20191209
  Transmission Date: 20200122
  Serious: Yes (Hospitalization)
  Sender: FDA-Public Use
  Company Number: US-ACTELION-A-NJ2019-185228

PATIENT
  Age: 60 Year
  Sex: Female
  Weight: 81.18 kg

DRUGS (11)
  1. OPSUMIT [Suspect]
     Active Substance: MACITENTAN
     Indication: PULMONARY HYPERTENSION
     Dosage: 10 MG, QD
     Route: 048
  2. VELETRI [Suspect]
     Active Substance: EPOPROSTENOL
     Dosage: 18 NG/KG, PER MIN
     Route: 042
     Dates: start: 20181212
  3. CELLCEPT [Concomitant]
     Active Substance: MYCOPHENOLATE MOFETIL\MYCOPHENOLATE MOFETIL HYDROCHLORIDE
  4. SPIRONOLACTONE. [Concomitant]
     Active Substance: SPIRONOLACTONE
  5. KCL [Concomitant]
     Active Substance: POTASSIUM CHLORIDE
  6. VELETRI [Suspect]
     Active Substance: EPOPROSTENOL
     Indication: PULMONARY HYPERTENSION
     Dosage: 13 NG/KG, PER MIN
     Route: 042
     Dates: start: 20190206
  7. VELETRI [Suspect]
     Active Substance: EPOPROSTENOL
     Dosage: 11 NG/KG, PER MIN
     Route: 042
     Dates: start: 20190209
  8. OXYGEN. [Concomitant]
     Active Substance: OXYGEN
  9. PRAVASTATIN. [Concomitant]
     Active Substance: PRAVASTATIN
  10. VELETRI [Suspect]
     Active Substance: EPOPROSTENOL
     Dosage: 12 NG/KG, PER MIN
     Route: 042
     Dates: start: 20181129
  11. ADEMPAS [Concomitant]
     Active Substance: RIOCIGUAT
     Dosage: 2.5 UNK, TID

REACTIONS (24)
  - Dyspnoea [Unknown]
  - Chest discomfort [Unknown]
  - Nausea [Unknown]
  - Immunosuppression [Unknown]
  - Pneumonia [Unknown]
  - Decreased appetite [Unknown]
  - Chest pain [Unknown]
  - Fluid retention [Unknown]
  - Chest tube removal [Unknown]
  - Pulmonary embolism [Unknown]
  - Lung consolidation [Unknown]
  - Diarrhoea [Unknown]
  - Cough [Unknown]
  - Chest tube insertion [Unknown]
  - Hyponatraemia [Unknown]
  - Pulmonary hypertension [Unknown]
  - Oedema peripheral [Unknown]
  - Upper respiratory tract infection [Unknown]
  - Asthenia [Unknown]
  - Pneumothorax spontaneous [Unknown]
  - Unevaluable event [Unknown]
  - Abdominal distension [Unknown]
  - Hospitalisation [Unknown]
  - Headache [Unknown]

NARRATIVE: CASE EVENT DATE: 20190206
